FAERS Safety Report 9368897 (Version 1)
Quarter: 2013Q2

REPORT INFORMATION
  Report Type: Spontaneous
  Country: IT (occurrence: None)
  Receive Date: 20130621
  Receipt Date: 20130621
  Transmission Date: 20140414
  Serious: No
  Sender: FDA-Public Use
  Company Number: 2013P1008486

PATIENT
  Age: 78 Year
  Sex: Female

DRUGS (1)
  1. DIGOXIN [Suspect]

REACTIONS (7)
  - Stress cardiomyopathy [None]
  - Bundle branch block right [None]
  - Bundle branch block left [None]
  - Renal failure acute [None]
  - Bradyarrhythmia [None]
  - Toxicity to various agents [None]
  - Dehydration [None]
